FAERS Safety Report 9790796 (Version 1)
Quarter: 2013Q4

REPORT INFORMATION
  Report Type: Spontaneous
  Country: FR (occurrence: FR)
  Receive Date: 20131231
  Receipt Date: 20131231
  Transmission Date: 20140711
  Serious: Yes (Hospitalization)
  Sender: FDA-Public Use
  Company Number: PHHY2013FR153020

PATIENT
  Age: 26 Year
  Sex: Female

DRUGS (2)
  1. VOLTARENE [Suspect]
     Indication: MUSCULOSKELETAL PAIN
     Dosage: 1 DF, TID
     Route: 048
     Dates: start: 201308, end: 201308
  2. THIOCOLCHICOSIDE [Suspect]
     Indication: MUSCULOSKELETAL PAIN
     Dosage: 1 DF, TID
     Route: 048
     Dates: start: 201308, end: 201308

REACTIONS (2)
  - Abdominal pain [Recovered/Resolved]
  - Diarrhoea haemorrhagic [Recovered/Resolved]
